FAERS Safety Report 9831279 (Version 1)
Quarter: 2014Q1

REPORT INFORMATION
  Report Type: Spontaneous
  Country: CA (occurrence: CA)
  Receive Date: 20140121
  Receipt Date: 20140121
  Transmission Date: 20141002
  Serious: Yes (Death)
  Sender: FDA-Public Use
  Company Number: CA-AMGEN-CANSP2014003262

PATIENT
  Age: 46 Year
  Sex: 0

DRUGS (1)
  1. ARANESP [Suspect]
     Indication: RENAL FAILURE CHRONIC
     Dosage: 80 MUG, UNK
     Route: 065
     Dates: start: 20120101

REACTIONS (1)
  - Myocardial infarction [Fatal]
